FAERS Safety Report 5700457-X (Version None)
Quarter: 2008Q2

REPORT INFORMATION
  Report Type: 
  Country: None (occurrence: None)
  Receive Date: 20080407
  Receipt Date: 20080326
  Transmission Date: 20081010
  Serious: Yes (Other)
  Sender: FDA-Public Use
  Company Number: DSU-2008-00344

PATIENT
  Sex: Male
  Weight: 90.7194 kg

DRUGS (5)
  1. BENICAR [Suspect]
     Indication: HYPERTENSION
     Dosage: 20 MG (20 MG,QD), PER ORAL
     Route: 048
     Dates: start: 20080213, end: 20080219
  2. BENICAR HCT [Suspect]
     Indication: HYPERTENSION
     Dosage: 20/12.5 MG (QD), PER ORAL
     Route: 048
     Dates: start: 20080220, end: 20080224
  3. TOPROL-XL [Concomitant]
  4. COUMADIN [Concomitant]
  5. LEXAPRO [Concomitant]

REACTIONS (2)
  - BLOOD SODIUM DECREASED [None]
  - MUSCLE SPASMS [None]
